FAERS Safety Report 5431157-1 (Version None)
Quarter: 2007Q3

REPORT INFORMATION
  Report Type: 
  Country: None (occurrence: None)
  Receive Date: 20070830
  Receipt Date: 20070309
  Transmission Date: 20080115
  Serious: No
  Sender: FDA-Public Use
  Company Number: A0642516A

PATIENT
  Sex: Female

DRUGS (2)
  1. BUPROPION HYDROCHLORIDE [Suspect]
     Indication: DRUG USE FOR UNKNOWN INDICATION
     Dosage: 200MG UNKNOWN
     Route: 048
  2. BUPROPION HYDROCHLORIDE [Suspect]
     Dosage: 100MG UNKNOWN
     Route: 048

REACTIONS (2)
  - DRUG INEFFECTIVE [None]
  - HEADACHE [None]
